FAERS Safety Report 9557266 (Version 1)
Quarter: 2013Q3

REPORT INFORMATION
  Report Type: Spontaneous
  Country: KR (occurrence: KR)
  Receive Date: 20130926
  Receipt Date: 20130926
  Transmission Date: 20140515
  Serious: Yes (Death, Other)
  Sender: FDA-Public Use
  Company Number: KR-BAXTER-2013BAX037537

PATIENT
  Sex: Female

DRUGS (4)
  1. HOLOXAN INJ 1000MG [Suspect]
     Indication: ANGIOIMMUNOBLASTIC T-CELL LYMPHOMA
     Route: 065
     Dates: start: 201106
  2. METHOTREXATE [Suspect]
     Indication: ANGIOIMMUNOBLASTIC T-CELL LYMPHOMA
     Route: 065
     Dates: start: 201106
  3. PREDNISOLONE [Suspect]
     Indication: ANGIOIMMUNOBLASTIC T-CELL LYMPHOMA
     Route: 065
     Dates: start: 201106
  4. ETOPOSIDE [Suspect]
     Indication: ANGIOIMMUNOBLASTIC T-CELL LYMPHOMA
     Route: 065
     Dates: start: 201106

REACTIONS (4)
  - Febrile neutropenia [Unknown]
  - Pneumocystis jirovecii pneumonia [Unknown]
  - Escherichia bacteraemia [Unknown]
  - Malignant neoplasm progression [Fatal]
